FAERS Safety Report 16817917 (Version 1)
Quarter: 2019Q3

REPORT INFORMATION
  Report Type: Other
  Country: US (occurrence: US)
  Receive Date: 20190917
  Receipt Date: 20190917
  Transmission Date: 20191005
  Serious: No
  Sender: FDA-Public Use
  Company Number: US-AGG-07-2019-1985

PATIENT

DRUGS (3)
  1. AGGRASTAT [Suspect]
     Active Substance: TIROFIBAN HYDROCHLORIDE
     Indication: ANTIPLATELET THERAPY
     Dosage: INTRAVENOUS MAINTENANCE DOSE, HELD 4 HOURS PRIOR TO EVD REEMOVAL/VPS PLACEMENT
     Route: 041
  2. AGGRASTAT [Suspect]
     Active Substance: TIROFIBAN HYDROCHLORIDE
     Indication: ANTIPLATELET THERAPY
     Dosage: INTRAVENOUS TIROFIBAN RESUMED 2 HOURS AFTER EVD REMOVAL/VPS PLACEMENT
     Route: 041
  3. DUAL ANTIPLATELET THERAPY (DAPT) (DRUGS NOT SPECIFIED) [Concomitant]

REACTIONS (1)
  - Haemorrhage [Unknown]
